FAERS Safety Report 20347045 (Version 1)
Quarter: 2022Q1

REPORT INFORMATION
  Report Type: Spontaneous
  Country: US (occurrence: None)
  Receive Date: 20220118
  Receipt Date: 20220118
  Transmission Date: 20220423
  Serious: Yes (Death)
  Sender: FDA-Public Use
  Company Number: None

PATIENT
  Age: 87 Year
  Sex: Male
  Weight: 63.05 kg

DRUGS (1)
  1. RITONAVIR [Suspect]
     Active Substance: RITONAVIR
     Indication: COVID-19
     Dosage: 100 MG OTHER PO?
     Route: 048
     Dates: start: 20220111, end: 20220112

REACTIONS (6)
  - COVID-19 [None]
  - Asthenia [None]
  - Confusional state [None]
  - Acute respiratory distress syndrome [None]
  - Sepsis [None]
  - Death [None]

NARRATIVE: CASE EVENT DATE: 20220113
